FAERS Safety Report 23815495 (Version 1)
Quarter: 2024Q2

REPORT INFORMATION
  Report Type: Report from Study
  Country: JP (occurrence: JP)
  Receive Date: 20240503
  Receipt Date: 20240503
  Transmission Date: 20240715
  Serious: Yes (Hospitalization)
  Sender: FDA-Public Use
  Company Number: JP-ORPHANEU-2024002275

PATIENT

DRUGS (9)
  1. ISTURISA [Suspect]
     Active Substance: OSILODROSTAT PHOSPHATE
     Indication: Cushing^s syndrome
     Dosage: 2 MILLIGRAM DAILY (BID)
     Dates: start: 20221020, end: 20221109
  2. ISTURISA [Suspect]
     Active Substance: OSILODROSTAT PHOSPHATE
     Dosage: 4 MG DAILY (BID)
     Dates: start: 20221110, end: 20221220
  3. METYRAPONE [Suspect]
     Active Substance: METYRAPONE
     Indication: Product used for unknown indication
     Dosage: 1500 MG, DAILY
     Route: 048
  4. TERIPARATIDE [Suspect]
     Active Substance: TERIPARATIDE
     Indication: Disease complication
     Dosage: 20 MICROGRAM, DAILY (INJECTION)
     Route: 058
     Dates: start: 20221223, end: 20230109
  5. POTASSIUM CHLORIDE [Concomitant]
     Active Substance: POTASSIUM CHLORIDE
     Indication: Disease complication
     Dosage: 1200 MG, DAILY
     Route: 048
     Dates: end: 20230110
  6. SULFAMETHOXAZOLE\TRIMETHOPRIM [Concomitant]
     Active Substance: SULFAMETHOXAZOLE\TRIMETHOPRIM
     Indication: Disease complication
     Dosage: 1 TABLET, DAILY
     Route: 048
     Dates: end: 20230724
  7. NEXIUM [Concomitant]
     Active Substance: ESOMEPRAZOLE MAGNESIUM
     Indication: Disease complication
     Dosage: 20 MG, DAILY (CAPSULE)
     Route: 048
  8. ALDACTONE [Concomitant]
     Active Substance: SPIRONOLACTONE
     Indication: Disease complication
     Dosage: 50 MG, DAILY
     Route: 048
  9. TRAMADOL [Concomitant]
     Active Substance: TRAMADOL\TRAMADOL HYDROCHLORIDE
     Indication: Disease complication
     Dosage: (ORODISPERSIBLE TABLET) 100 MG, ORAL
     Route: 048
     Dates: end: 20230110

REACTIONS (2)
  - Adrenal insufficiency [Recovering/Resolving]
  - Therapeutic product effect incomplete [Recovered/Resolved]

NARRATIVE: CASE EVENT DATE: 20230110
